FAERS Safety Report 6015140-3 (Version None)
Quarter: 2008Q4

REPORT INFORMATION
  Report Type: 
  Country: None (occurrence: None)
  Receive Date: 20081218
  Receipt Date: 20081203
  Transmission Date: 20090506
  Serious: Yes (Hospitalization)
  Sender: FDA-Public Use
  Company Number: KV200800966

PATIENT
  Age: 63 Year
  Sex: Female
  Weight: 88.9 kg

DRUGS (17)
  1. MORPHINE SULFATE [Suspect]
     Indication: BACK PAIN
     Dosage: 15 MG, BID, ORAL
     Route: 048
     Dates: start: 20080913, end: 20080913
  2. OXYCODONE HCL [Concomitant]
  3. ISOSORBIDE (ISOSORBIDE) [Concomitant]
  4. NITROGLYCERIN [Concomitant]
  5. PLAVIX [Concomitant]
  6. LISINOPRIL [Concomitant]
  7. DARVOCET [Concomitant]
  8. GABAPENTIN [Concomitant]
  9. ZETIA [Concomitant]
  10. LIPITOR [Concomitant]
  11. NEXIUM [Concomitant]
  12. ASPIRIN [Concomitant]
  13. PRO-AIR (PROCATEROL HYDROCHLORIDE) INHALER [Concomitant]
  14. COMBIVENT /01033501/ (IPRATROPIUM BROMIDE, SALBUTAMOL) INHALER [Concomitant]
  15. VITAMIN C /00008001/ (ASCORBIC ACID) [Concomitant]
  16. LOVAZA [Concomitant]
  17. MULTIVITAMIN /00831701/ (VITAMINS NOS) [Concomitant]

REACTIONS (3)
  - LOSS OF CONSCIOUSNESS [None]
  - PRODUCT QUALITY ISSUE [None]
  - RESPIRATORY ARREST [None]
